FAERS Safety Report 9088820 (Version 2)
Quarter: 2013Q2

REPORT INFORMATION
  Report Type: Spontaneous
  Country: US (occurrence: US)
  Receive Date: 20130201
  Receipt Date: 20130412
  Transmission Date: 20140414
  Serious: Yes (Other)
  Sender: FDA-Public Use
  Company Number: CHPA2013US001798

PATIENT
  Age: 71 Year
  Sex: Male

DRUGS (1)
  1. 4 WAY MENTHOLATED NASAL SPRAY [Suspect]
     Indication: DYSPNOEA
     Dosage: 1 SPRAY IN EACH NOSTRIL AS NEEDED
     Route: 045
     Dates: start: 1972

REACTIONS (5)
  - Sleep apnoea syndrome [Unknown]
  - Myocardial infarction [Unknown]
  - Dyspnoea [Unknown]
  - Insomnia [Unknown]
  - Underdose [Unknown]
